FAERS Safety Report 11697321 (Version 6)
Quarter: 2016Q1

REPORT INFORMATION
  Report Type: Report from Study
  Country: US (occurrence: US)
  Receive Date: 20151104
  Receipt Date: 20160219
  Transmission Date: 20160525
  Serious: No
  Sender: FDA-Public Use
  Company Number: PHEH2015US022479

PATIENT
  Age: 59 Year
  Sex: Male
  Weight: 68.27 kg

DRUGS (1)
  1. GILENYA [Suspect]
     Active Substance: FINGOLIMOD HYDROCHLORIDE
     Indication: MULTIPLE SCLEROSIS
     Dosage: 0.5 MG, QD
     Route: 048
     Dates: start: 20151030

REACTIONS (6)
  - Headache [Recovered/Resolved]
  - Palpitations [Unknown]
  - Urinary tract infection [Not Recovered/Not Resolved]
  - Blindness transient [Recovered/Resolved]
  - Vision blurred [Unknown]
  - Dysphagia [Unknown]

NARRATIVE: CASE EVENT DATE: 20151030
